FAERS Safety Report 7569053-6 (Version None)
Quarter: 2011Q2

REPORT INFORMATION
  Report Type: 
  Country: None (occurrence: None)
  Receive Date: 20110623
  Receipt Date: 20110615
  Transmission Date: 20111010
  Serious: Yes (Other)
  Sender: FDA-Public Use
  Company Number: US-CEPHALON-2011003045

PATIENT
  Sex: Male

DRUGS (3)
  1. TYSABRI [Concomitant]
  2. PROVIGIL [Suspect]
     Route: 048
  3. AMPYRA [Suspect]
     Indication: MULTIPLE SCLEROSIS
     Route: 048
     Dates: start: 20110301, end: 20110607

REACTIONS (4)
  - VISUAL FIELD DEFECT [None]
  - GAIT DISTURBANCE [None]
  - PAIN IN EXTREMITY [None]
  - ARTHROPATHY [None]
